FAERS Safety Report 23684950 (Version 3)
Quarter: 2024Q2

REPORT INFORMATION
  Report Type: Report from Study
  Country: MX (occurrence: MX)
  Receive Date: 20240328
  Receipt Date: 20240508
  Transmission Date: 20240716
  Serious: No
  Sender: FDA-Public Use
  Company Number: MX-002147023-NVSC2024MX059904

PATIENT
  Age: 50 Year
  Sex: Female
  Weight: 57.2 kg

DRUGS (5)
  1. KISQALI [Suspect]
     Active Substance: RIBOCICLIB
     Indication: Breast cancer metastatic
     Dosage: 600 MG, QD (3 X 200MG), STARTED THE SECOND MONTH OF THE TREATMENT ON WEDNESDAY
     Route: 048
     Dates: start: 20240206, end: 20240414
  2. KISQALI [Suspect]
     Active Substance: RIBOCICLIB
     Dosage: UNK
     Route: 048
     Dates: start: 20240213
  3. KISQALI [Suspect]
     Active Substance: RIBOCICLIB
     Dosage: 2 DOSAGE FORM, QD
     Route: 048
     Dates: start: 20240415
  4. LETROZOLE [Suspect]
     Active Substance: LETROZOLE
     Indication: Breast cancer metastatic
     Dosage: 1 DOSAGE FORM, QD (STARTED THE SECOND MONTH OF THE TREATMENT ON WED)
     Route: 048
     Dates: start: 20240206
  5. GOSERELIN [Concomitant]
     Active Substance: GOSERELIN
     Indication: Hormone suppression therapy
     Dosage: 1, Q3MO (3.6 MG)
     Route: 030
     Dates: start: 20240206

REACTIONS (28)
  - Immune system disorder [Not Recovered/Not Resolved]
  - Fatigue [Not Recovered/Not Resolved]
  - Premature menopause [Not Recovered/Not Resolved]
  - Abdominal pain upper [Not Recovered/Not Resolved]
  - Nausea [Not Recovered/Not Resolved]
  - Somnolence [Unknown]
  - Lacrimation increased [Not Recovered/Not Resolved]
  - Abdominal discomfort [Unknown]
  - Eye irritation [Recovered/Resolved]
  - Diarrhoea [Recovered/Resolved]
  - Constipation [Not Recovered/Not Resolved]
  - Stress [Unknown]
  - Anxiety [Unknown]
  - Blood glucose increased [Not Recovered/Not Resolved]
  - Anger [Unknown]
  - Inflammation [Unknown]
  - Arthralgia [Unknown]
  - Eye pain [Unknown]
  - Nervousness [Unknown]
  - Feeling abnormal [Unknown]
  - Pyrexia [Unknown]
  - Weight increased [Unknown]
  - Increased appetite [Unknown]
  - Illness [Recovered/Resolved]
  - Insomnia [Recovered/Resolved]
  - Alopecia [Unknown]
  - Headache [Not Recovered/Not Resolved]
  - Pruritus [Not Recovered/Not Resolved]

NARRATIVE: CASE EVENT DATE: 20240201
